FAERS Safety Report 19039297 (Version 2)
Quarter: 2021Q4

REPORT INFORMATION
  Report Type: Spontaneous
  Country: CO (occurrence: CO)
  Receive Date: 20210322
  Receipt Date: 20211123
  Transmission Date: 20220303
  Serious: Yes (Other)
  Sender: FDA-Public Use
  Company Number: CO-RECORDATI-2021001084

PATIENT

DRUGS (12)
  1. SIGNIFOR [Suspect]
     Active Substance: PASIREOTIDE DIASPARTATE
     Indication: Pituitary-dependent Cushing^s syndrome
     Dosage: 0.6 MILLIGRAM, EVERY 12 HOURS
     Route: 058
     Dates: start: 20210204, end: 20210227
  2. SIGNIFOR [Suspect]
     Active Substance: PASIREOTIDE DIASPARTATE
     Dosage: 0.6 MILLIGRAM
     Route: 058
     Dates: start: 2021, end: 20211031
  3. CABERGOLINE [Concomitant]
     Active Substance: CABERGOLINE
     Indication: Cushing^s syndrome
     Dosage: 0.5 MILLIGRAM/DAY
     Dates: start: 2020
  4. KETOCONAZOLE [Concomitant]
     Active Substance: KETOCONAZOLE
     Indication: Cushing^s syndrome
     Dosage: 200 MILLIGRAM/DAY
     Dates: start: 2020
  5. TOPIRAMATE [Concomitant]
     Active Substance: TOPIRAMATE
     Indication: Epilepsy
     Dosage: 200 MILLIGRAM/DAY
     Dates: start: 2019
  6. LINAGLIPTIN [Concomitant]
     Active Substance: LINAGLIPTIN
     Indication: Hyperglycaemia
     Dosage: 150 MILLIGRAM/DAY
     Dates: start: 2020
  7. SPIRONOLACTONE [Concomitant]
     Active Substance: SPIRONOLACTONE
     Indication: Diuretic therapy
     Dosage: 200 MILLIGRAM/DAY
     Dates: start: 2021
  8. METFORMIN HYDROCHLORIDE [Concomitant]
     Active Substance: METFORMIN HYDROCHLORIDE
     Indication: Type 2 diabetes mellitus
     Dosage: 850 MILLIGRAM, Q12H
  9. SITAGLIPTIN [Concomitant]
     Active Substance: SITAGLIPTIN
     Indication: Diabetes insipidus
     Dosage: 100 MILLIGRAM, EVERY 24 HOURS
  10. LEVOTHYROXINE [Concomitant]
     Active Substance: LEVOTHYROXINE
     Indication: Hypothyroidism
     Dosage: 100 MICROGRAM, EVERY 24 HOURS
  11. ROSUVASTATIN [Concomitant]
     Active Substance: ROSUVASTATIN
     Indication: Hypercholesterolaemia
     Dosage: 40 MILLIGRAM, EVERY 24 HOURS
  12. BOTULINUM TOXIN NOS [Concomitant]
     Active Substance: BOTULINUM TOXIN NOS
     Indication: Migraine
     Dosage: 200 INTERNATIONAL UNIT, EVERY 3 MONTHS
     Route: 023

REACTIONS (7)
  - Vaginal haemorrhage [Recovered/Resolved]
  - Headache [Not Recovered/Not Resolved]
  - Headache [Recovered/Resolved]
  - Vomiting [Recovered/Resolved]
  - Myalgia [Recovered/Resolved]
  - Diarrhoea [Recovered/Resolved]
  - Product administration interrupted [Recovered/Resolved]

NARRATIVE: CASE EVENT DATE: 20210208
